FAERS Safety Report 25319526 (Version 1)
Quarter: 2025Q2

REPORT INFORMATION
  Report Type: Report from Study
  Country: IE (occurrence: IE)
  Receive Date: 20250515
  Receipt Date: 20250515
  Transmission Date: 20250716
  Serious: Yes (Other)
  Sender: EMD SERONO INC
  Company Number: IE-Merck Healthcare KGaA-2025023558

PATIENT
  Sex: Female

DRUGS (2)
  1. MAVENCLAD [Suspect]
     Active Substance: CLADRIBINE
     Indication: Relapsing-remitting multiple sclerosis
     Dates: start: 20240806
  2. MAVENCLAD [Suspect]
     Active Substance: CLADRIBINE
     Dates: start: 20240903

REACTIONS (1)
  - Lower respiratory tract infection [Not Recovered/Not Resolved]
